FAERS Safety Report 4968619-7 (Version None)
Quarter: 2006Q2

REPORT INFORMATION
  Report Type: 
  Country: None (occurrence: None)
  Receive Date: 20060405
  Receipt Date: 20060321
  Transmission Date: 20061013
  Serious: Yes (Hospitalization, Other)
  Sender: FDA-Public Use
  Company Number: 222792

PATIENT
  Age: 70 Year
  Sex: Female

DRUGS (6)
  1. AVASTIN [Suspect]
     Indication: NON-SMALL CELL LUNG CANCER
     Dosage: 750 MG, Q3W, INTRAVENOUS
     Route: 042
     Dates: start: 20060119, end: 20060209
  2. ERLOTINIB (ERLOTINIB) TABLET, 100MG [Suspect]
     Indication: NON-SMALL CELL LUNG CANCER
     Dosage: 150 MG, QD, ORAL
     Route: 048
     Dates: start: 20060119
  3. RAMIPRIL [Concomitant]
  4. DURAGESIC-100 [Concomitant]
  5. IRFEN (IBUPROFEN) [Concomitant]
  6. NEXIUM [Concomitant]

REACTIONS (2)
  - CHEST PAIN [None]
  - HYPERTENSION [None]
